FAERS Safety Report 8925116 (Version 1)
Quarter: 2012Q4

REPORT INFORMATION
  Report Type: Report from Study
  Country: US (occurrence: US)
  Receive Date: 20121126
  Receipt Date: 20121126
  Transmission Date: 20130627
  Serious: Yes (Life-Threatening)
  Sender: FDA-Public Use
  Company Number: US-ELI_LILLY_AND_COMPANY-US201211006730

PATIENT
  Age: 60 Year
  Sex: Male
  Weight: 70.8 kg

DRUGS (3)
  1. PEMETREXED [Suspect]
     Indication: NON-SMALL CELL LUNG CANCER METASTATIC
     Dosage: 100 mg, every 3 weeks
     Dates: start: 20090504
  2. BEVACIZUMAB [Suspect]
     Indication: NON-SMALL CELL LUNG CANCER METASTATIC
     Dosage: 15 mg/kg, every 3 weeks
     Route: 042
     Dates: start: 20081127
  3. COUMADIN [Concomitant]
     Indication: DEEP VEIN THROMBOSIS

REACTIONS (2)
  - Cerebrovascular accident [Recovered/Resolved]
  - Myocardial infarction [Recovered/Resolved]
